FAERS Safety Report 5533299-9 (Version None)
Quarter: 2007Q4

REPORT INFORMATION
  Report Type: 
  Country: None (occurrence: None)
  Receive Date: 20071130
  Receipt Date: 20071130
  Transmission Date: 20080405
  Serious: No
  Sender: FDA-Public Use
  Company Number: None

PATIENT
  Age: 34 Year
  Sex: Female
  Weight: 72.5755 kg

DRUGS (1)
  1. MIRENA [Suspect]
     Indication: MENORRHAGIA
     Dosage: MIRENA  IUD   INTRA-UTERI
     Route: 015
     Dates: start: 20070305, end: 20071027

REACTIONS (5)
  - ACNE [None]
  - ARTHRALGIA [None]
  - DEPRESSION [None]
  - MOOD ALTERED [None]
  - WEIGHT INCREASED [None]
